FAERS Safety Report 9730954 (Version 4)
Quarter: 2014Q2

REPORT INFORMATION
  Report Type: Spontaneous
  Country: CN (occurrence: CN)
  Receive Date: 20131203
  Receipt Date: 20140513
  Transmission Date: 20141212
  Serious: Yes (Death, Hospitalization, Other)
  Sender: FDA-Public Use
  Company Number: PHHY2013CN139593

PATIENT
  Age: 70 Year
  Sex: Male
  Weight: 50 kg

DRUGS (44)
  1. GLIVEC [Suspect]
     Indication: GASTROINTESTINAL STROMAL TUMOUR
     Dosage: 400 MG, QD
     Route: 048
     Dates: start: 20131114, end: 20131116
  2. GLIVEC [Suspect]
     Indication: GASTROINTESTINAL NEOPLASM
  3. FAT EMULSIONS [Concomitant]
     Dosage: 250 ML, QD
     Dates: start: 20131123
  4. SODIUM CHLORIDE [Concomitant]
     Dosage: 100 ML, QD
     Dates: start: 20131122
  5. SODIUM CHLORIDE [Concomitant]
     Dosage: 20 ML, UNK
     Dates: start: 20131122, end: 20131123
  6. SODIUM CHLORIDE [Concomitant]
     Dosage: 250 ML, QD
     Route: 042
     Dates: start: 20131123
  7. SODIUM CHLORIDE [Concomitant]
     Dosage: 250 ML, QD
     Dates: start: 20131125
  8. SODIUM CHLORIDE [Concomitant]
     Dosage: 100 ML, Q8H
     Dates: start: 20131125
  9. SODIUM CHLORIDE [Concomitant]
     Dosage: 500 ML, UNK
     Route: 042
  10. SODIUM CHLORIDE [Concomitant]
     Dosage: 20 ML, Q8H
     Dates: end: 20131126
  11. MAGNESIUM ISOGLYCYRRHIZINATE [Concomitant]
     Dosage: 150 MG, UNK
     Dates: start: 20131123
  12. GLUTATHIONE [Concomitant]
     Dosage: 1.8 G, UNK
     Dates: start: 20131123
  13. TEICOPLANIN [Concomitant]
     Dosage: 0.4 G, UNK
     Dates: start: 20131125
  14. TEICOPLANIN [Concomitant]
     Dosage: 0.2 G, UNK
     Dates: end: 20131126
  15. MEROPENEM [Concomitant]
     Dosage: 1 G, UNK
     Dates: start: 20131125
  16. SODIUM LACTATE [Concomitant]
     Dosage: 500 ML, ONE DAY
     Route: 042
     Dates: start: 20131126
  17. CEFMETAZOLE [Concomitant]
     Dosage: 2 G, UNK
     Route: 065
     Dates: start: 20131121
  18. ALUMINIUM PHOSPHATE GEL [Concomitant]
     Dosage: UNK UKN, 1 BAG S.T. ONE DAY
     Dates: start: 20131121
  19. POTASSIUM CHLORIDE [Concomitant]
     Dosage: 10 ML, ONE DAY
     Dates: start: 20131121
  20. HEPARIN SODIUM [Concomitant]
     Dosage: 0.125 MIU, UNK
     Dates: start: 20131121
  21. ESTAZOLAM [Concomitant]
     Dosage: 1 MG, QD
     Route: 048
     Dates: start: 20131122, end: 20131123
  22. ESTAZOLAM [Concomitant]
     Dosage: 2 MG, UNK
     Route: 048
  23. GLUCOSE [Concomitant]
     Dosage: 20 ML, UNK
     Route: 065
     Dates: start: 20131122, end: 20131123
  24. GLUCOSE [Concomitant]
     Dosage: 200 ML, QD
     Dates: start: 20131121, end: 20131123
  25. ESSENTIALE [Concomitant]
     Dosage: UNK UKN, UNK
     Dates: start: 20131121
  26. ESSENTIALE [Concomitant]
     Dosage: UNK UKN, 2 BOTTLES
     Dates: start: 20131122, end: 20131123
  27. PANANGIN [Concomitant]
     Dosage: UNK UKN,6 BOTTLES
     Dates: start: 20131122, end: 20131123
  28. COMPOUND V [Concomitant]
     Dosage: UNK UKN, UNK
     Dates: start: 20131122, end: 20131123
  29. ZADAXIN [Concomitant]
     Dosage: 1.6 MG, ONE DAY
     Dates: start: 20131122, end: 20131123
  30. RANITIDINE HYDROCHLORIDE [Concomitant]
     Dosage: 150 MG, UNK
     Dates: start: 20131122, end: 20131123
  31. FUROSEMIDE [Concomitant]
     Dosage: 20 MG, UNK
     Dates: start: 20131122
  32. TAZOCIN [Concomitant]
     Dosage: 4.5 G, UNK
     Dates: start: 20131122
  33. AMBROXOL HYDROCHLORIDE [Concomitant]
     Dosage: 30 MG, UNK
     Dates: start: 20131122
  34. ANSAIMA [Concomitant]
     Dosage: 0.3 G, UNK
     Dates: start: 20131122
  35. LEVOCARNITINE [Concomitant]
     Dosage: 3 G, UNK
     Dates: start: 20131121, end: 20131123
  36. FRUCTOSE DIPHOSPHATE SODIUM [Concomitant]
     Dosage: 10 G, QD
     Dates: start: 20131121, end: 20131123
  37. ETAMSYLATE [Concomitant]
     Dosage: 2 G, UNK
     Dates: start: 20131121, end: 20131122
  38. VITAMIN K1 [Concomitant]
     Dosage: 10 MG, UNK
     Dates: start: 20131121, end: 20131122
  39. CEFMETAZON [Concomitant]
     Dosage: 2 G, UNK
     Dates: start: 20131121, end: 20131122
  40. CALCIUM GLUCONATE [Concomitant]
     Dosage: 30 ML, UNK
     Dates: start: 20131121, end: 20131122
  41. AMINO ACID [Concomitant]
     Dosage: UNK UKN, UNK
     Dates: start: 20131121, end: 20131123
  42. VITAMIN C [Concomitant]
     Dosage: 2 G, UNK
     Dates: start: 20131121, end: 20131123
  43. MEGLUMINE [Concomitant]
     Dosage: 150 MG, UNK
     Dates: start: 20131121, end: 20131123
  44. TAKEPRON [Concomitant]
     Dosage: 30 MG, DAILY
     Route: 048
     Dates: start: 20131121

REACTIONS (21)
  - Lung infection [Fatal]
  - Bone marrow failure [Fatal]
  - Hypoproteinaemia [Unknown]
  - Hypocalcaemia [Unknown]
  - Respiratory failure [Unknown]
  - Pneumonia [Unknown]
  - Hypophosphataemia [Unknown]
  - Hypokalaemia [Unknown]
  - Anaemia [Unknown]
  - Thrombocytopenia [Unknown]
  - Haemorrhage [Unknown]
  - Chest discomfort [Unknown]
  - White blood cell count increased [Unknown]
  - Swelling [Unknown]
  - Nausea [Unknown]
  - Vomiting [Unknown]
  - Pyrexia [Unknown]
  - Loss of consciousness [Unknown]
  - Neutropenia [Unknown]
  - Oedema [Unknown]
  - Confusional state [Unknown]
